FAERS Safety Report 10079581 (Version 1)
Quarter: 2014Q2

REPORT INFORMATION
  Report Type: Spontaneous
  Country: US (occurrence: None)
  Receive Date: 20140414
  Receipt Date: 20140414
  Transmission Date: 20141212
  Serious: No
  Sender: FDA-Public Use
  Company Number: None

PATIENT
  Age: 43 Year
  Sex: Female

DRUGS (1)
  1. DUREZOL [Suspect]
     Indication: SURGERY
     Dosage: FOUR TIMES DAILY INTO THE EYE
     Dates: start: 20140220, end: 20140407

REACTIONS (2)
  - Blister [None]
  - Dermatitis [None]
